FAERS Safety Report 17968690 (Version 1)
Quarter: 2020Q3

REPORT INFORMATION
  Report Type: Spontaneous
  Country: US (occurrence: US)
  Receive Date: 20200701
  Receipt Date: 20200701
  Transmission Date: 20201103
  Serious: No
  Sender: FDA-Public Use
  Company Number: US-GILEAD-2020-0476259

PATIENT
  Age: 53 Year
  Sex: Male
  Weight: 77.1 kg

DRUGS (8)
  1. LENVIMA [Suspect]
     Active Substance: LENVATINIB
     Indication: HEPATOCELLULAR CARCINOMA
     Dosage: 8 MG, QD
     Route: 048
     Dates: start: 20200414
  2. MULTIVITAMIN + MINERAL [Concomitant]
     Active Substance: MINERALS\VITAMINS
  3. LASIX [Concomitant]
     Active Substance: FUROSEMIDE
  4. EPCLUSA [Suspect]
     Active Substance: SOFOSBUVIR\VELPATASVIR
     Indication: PRODUCT USED FOR UNKNOWN INDICATION
     Dosage: UNK
     Route: 065
     Dates: end: 202006
  5. MOMETASONE FUROATE. [Concomitant]
     Active Substance: MOMETASONE FUROATE
  6. FLUOCINONIDE?E [Concomitant]
     Active Substance: FLUOCINONIDE
  7. SPIRONOLACTONE. [Concomitant]
     Active Substance: SPIRONOLACTONE
  8. GRAPE SEED EXTRACT [CITRUS AURANTIUM FRUIT;VITIS VINIFERA SEED] [Concomitant]

REACTIONS (3)
  - Arthralgia [Not Recovered/Not Resolved]
  - Rash erythematous [Recovering/Resolving]
  - Nausea [Recovering/Resolving]

NARRATIVE: CASE EVENT DATE: 202006
